FAERS Safety Report 8301229-2 (Version None)
Quarter: 2012Q2

REPORT INFORMATION
  Report Type: 
  Country: None (occurrence: None)
  Receive Date: 20120420
  Receipt Date: 20120420
  Transmission Date: 20120825
  Serious: Yes (Disabling)
  Sender: FDA-Public Use
  Company Number: None

PATIENT
  Age: 5 Year
  Sex: Female
  Weight: 16.4 kg

DRUGS (1)
  1. PEG-ASPARGINASE [Suspect]
     Indication: ACUTE LYMPHOCYTIC LEUKAEMIA
     Dosage: 1800 UNITS
     Route: 042

REACTIONS (4)
  - PRURITUS [None]
  - COUGH [None]
  - WHEEZING [None]
  - LIP SWELLING [None]
